FAERS Safety Report 5175142-6 (Version None)
Quarter: 2006Q4

REPORT INFORMATION
  Report Type: 
  Country: None (occurrence: None)
  Receive Date: 20061206
  Receipt Date: 20061127
  Transmission Date: 20070319
  Serious: Yes (Death, Disabling)
  Sender: FDA-Public Use
  Company Number: 232441

PATIENT
  Age: 86 Year
  Sex: Male

DRUGS (1)
  1. GRTPA (ALTEPLASE) PWDR + SOLVENT, INFUSION SOLN [Suspect]
     Indication: CEREBRAL ARTERY EMBOLISM
     Dosage: 29 ML, SINGLE, INTRAVENOUS
     Route: 042
     Dates: start: 20061023, end: 20061023

REACTIONS (8)
  - ALANINE AMINOTRANSFERASE INCREASED [None]
  - ARRHYTHMIA [None]
  - ASPARTATE AMINOTRANSFERASE INCREASED [None]
  - ATRIAL FIBRILLATION [None]
  - BLOOD LACTATE DEHYDROGENASE INCREASED [None]
  - CONDITION AGGRAVATED [None]
  - HEPATIC FUNCTION ABNORMAL [None]
  - TACHYCARDIA [None]
